FAERS Safety Report 6317799-X (Version None)
Quarter: 2009Q3

REPORT INFORMATION
  Report Type: 
  Country: None (occurrence: None)
  Receive Date: 20090821
  Receipt Date: 20090601
  Transmission Date: 20100115
  Serious: No
  Sender: FDA-Public Use
  Company Number: US-BAYER-200922519NA

PATIENT
  Age: 31 Year
  Sex: Female
  Weight: 66 kg

DRUGS (3)
  1. MIRENA [Suspect]
     Indication: CONTRACEPTION
     Dosage: CONTINUOUS
     Route: 015
     Dates: start: 20090301
  2. HUMALOG [Concomitant]
  3. ANTI-HYPERTENSIVE MED [Concomitant]

REACTIONS (1)
  - IUCD COMPLICATION [None]
